FAERS Safety Report 16963076 (Version 1)
Quarter: 2019Q4

REPORT INFORMATION
  Report Type: Spontaneous
  Country: JP (occurrence: JP)
  Receive Date: 20191025
  Receipt Date: 20191025
  Transmission Date: 20200122
  Serious: Yes (Other)
  Sender: FDA-Public Use
  Company Number: JP-BAXTER-2019BAX021001

PATIENT
  Age: 12 Year
  Sex: Female

DRUGS (9)
  1. HOLOXAN [Suspect]
     Active Substance: IFOSFAMIDE
     Dosage: PHASE III CHEMOTHERAPY-2 G/M2 ON DAY 2-7
     Route: 065
  2. UROMITEXAN 400 MG [Suspect]
     Active Substance: MESNA
     Dosage: DAILY DOSE WAS INCREASED TO 100% DOSAGE AMOUNT OF IFOMIDE (ADMINISTERED THREE TIMES DAILY)
     Route: 042
  3. HOLOXAN [Suspect]
     Active Substance: IFOSFAMIDE
     Indication: OSTEOSARCOMA
     Dosage: PHASE III CHEMOTHERAPY - 4 G/M2 ON DAY 1
     Route: 065
  4. UROMITEXAN 400 MG [Suspect]
     Active Substance: MESNA
     Indication: OSTEOSARCOMA
     Dosage: DAILY DOSE WAS 60% DOSAGE AMOUNT OF IFOMIDE)
     Route: 042
  5. UROMITEXAN 400 MG [Suspect]
     Active Substance: MESNA
     Dosage: DAY 6 OF THE 1ST OF PHASE IV  CHEMOTHERAPY -DOSE OF UROMITEXAN WAS INCREASED SAME AS THE LAST TIME
     Route: 042
  6. UROMITEXAN 400 MG [Suspect]
     Active Substance: MESNA
     Dosage: IN THE SECOND COURSE OF PHASE IV CHEMOTHERAPY-INITIATED WITH SAME DOSE OF PREVIOUS ADMINISTRATION
     Route: 042
  7. UROMITEXAN 400 MG [Suspect]
     Active Substance: MESNA
     Dosage: DAY 4 OF 2ND COURSE OF PHASE IV -CHANGED TO 24H CONTINUOUS INFUSION, 60% DOSAGE AMOUNT OF IFOMIDE
     Route: 042
  8. HOLOXAN [Suspect]
     Active Substance: IFOSFAMIDE
     Dosage: PHASE IV CHEMOTHERAPY-4 G/M2 ON DAY 1
     Route: 065
  9. HOLOXAN [Suspect]
     Active Substance: IFOSFAMIDE
     Dosage: PHASE IV CHEMOTHERAPY-2 G/M2 ON DAY 2-7
     Route: 065

REACTIONS (1)
  - Cystitis haemorrhagic [Recovering/Resolving]
